FAERS Safety Report 4383485-9 (Version None)
Quarter: 2004Q2

REPORT INFORMATION
  Report Type: 
  Country: None (occurrence: None)
  Receive Date: 20040623
  Receipt Date: 20040611
  Transmission Date: 20050107
  Serious: Yes (Death)
  Sender: FDA-Public Use
  Company Number: 200415966GDDC

PATIENT
  Age: 60 Year
  Sex: Female
  Weight: 87.3 kg

DRUGS (3)
  1. LOVENOX [Suspect]
     Indication: CORONARY ANGIOPLASTY
     Route: 040
     Dates: start: 20040608, end: 20040608
  2. ASPIRIN [Concomitant]
     Indication: CORONARY ARTERY DISEASE
     Route: 048
     Dates: start: 20040323, end: 20040611
  3. PLAVIX [Concomitant]
     Indication: STENT PLACEMENT
     Route: 048
     Dates: start: 20040604, end: 20040611

REACTIONS (16)
  - CARDIAC ARREST [None]
  - CARDIOGENIC SHOCK [None]
  - CHEST PAIN [None]
  - CIRCULATORY COLLAPSE [None]
  - DRUG INEFFECTIVE [None]
  - HYPERKALAEMIA [None]
  - LOSS OF CONSCIOUSNESS [None]
  - MYOCARDIAL INFARCTION [None]
  - PERIPHERAL COLDNESS [None]
  - PNEUMOTHORAX [None]
  - PULSE ABSENT [None]
  - RESPIRATORY ARREST [None]
  - STENT OCCLUSION [None]
  - THROMBOSIS [None]
  - VENTRICULAR FIBRILLATION [None]
  - VENTRICULAR TACHYCARDIA [None]
